FAERS Safety Report 5153476-9 (Version None)
Quarter: 2006Q4

REPORT INFORMATION
  Report Type: 
  Country: None (occurrence: None)
  Receive Date: 20061117
  Receipt Date: 20061109
  Transmission Date: 20070319
  Serious: Yes (Life-Threatening)
  Sender: FDA-Public Use
  Company Number: GB-ABBOTT-06P-167-0350023-00

PATIENT
  Age: 40 Year
  Sex: Female

DRUGS (4)
  1. HUMIRA [Suspect]
     Indication: INFERTILITY
     Route: 058
     Dates: start: 20060125, end: 20060125
  2. HUMIRA [Suspect]
     Indication: SJOGREN'S SYNDROME
  3. AMOXICILLIN [Concomitant]
     Indication: SINUSITIS
     Route: 048
     Dates: start: 20060704, end: 20060711
  4. BETAMETHASONE [Concomitant]
     Indication: ORAL PAIN
     Route: 048
     Dates: start: 20060210

REACTIONS (2)
  - LICHENIFICATION [None]
  - SQUAMOUS CELL CARCINOMA [None]
